FAERS Safety Report 5777587-X (Version None)
Quarter: 2008Q2

REPORT INFORMATION
  Report Type: 
  Country: None (occurrence: None)
  Receive Date: 20080618
  Receipt Date: 20080606
  Transmission Date: 20081010
  Serious: Yes (Life-Threatening, Hospitalization)
  Sender: FDA-Public Use
  Company Number: BR-ELI_LILLY_AND_COMPANY-BR200806001732

PATIENT
  Age: 55 Year
  Sex: Female

DRUGS (3)
  1. CYMBALTA [Suspect]
     Indication: BIPOLAR I DISORDER
     Dosage: 60 MG, UNKNOWN
     Route: 048
     Dates: start: 20070719, end: 20080114
  2. ALPRAZOLAM [Concomitant]
     Indication: BIPOLAR I DISORDER
     Dosage: 0.5 UNK, UNKNOWN
     Route: 048
     Dates: start: 20070719
  3. LAMOTRIGINE [Concomitant]
     Indication: BIPOLAR I DISORDER
     Dosage: 100 UNK, UNKNOWN
     Route: 048
     Dates: start: 20070719

REACTIONS (1)
  - HEPATITIS [None]
